FAERS Safety Report 24046796 (Version 2)
Quarter: 2024Q3

REPORT INFORMATION
  Report Type: Spontaneous
  Country: TW (occurrence: TW)
  Receive Date: 20240703
  Receipt Date: 20240912
  Transmission Date: 20241017
  Serious: Yes (Hospitalization, Other)
  Sender: FRESENIUS KABI
  Company Number: TW-FreseniusKabi-FK202409834

PATIENT
  Age: 49 Year
  Sex: Female
  Weight: 61.7 kg

DRUGS (5)
  1. LEUCOVORIN CALCIUM [Suspect]
     Active Substance: LEUCOVORIN CALCIUM
     Indication: Colon cancer
     Dosage: FORM OF ADMIN-SOLUTION FOR INJECTION?FREQUENCY-ONCE
     Route: 042
     Dates: start: 20240524, end: 20240524
  2. ENCORAFENIB [Suspect]
     Active Substance: ENCORAFENIB
     Indication: Colon cancer
     Dosage: FOA-CAPSULE?FREQUENCY-ONCE?TEMPORARILY WITHDRAWN
     Route: 048
     Dates: start: 20240524, end: 20240527
  3. CETUXIMAB [Suspect]
     Active Substance: CETUXIMAB
     Indication: Colon cancer
     Dosage: FOA-SOLUTION FOR INFUSION?FRQUENCY-ONCE
     Route: 042
     Dates: start: 20240524, end: 20240524
  4. FLUOROURACIL [Suspect]
     Active Substance: FLUOROURACIL
     Indication: Colon cancer
     Dosage: FOA-SOLUTION FOR INFUSION?FREQUENCY-ONCE
     Route: 040
     Dates: start: 20240524, end: 20240524
  5. IRINOTECAN HYDROCHLORIDE [Suspect]
     Active Substance: IRINOTECAN HYDROCHLORIDE
     Indication: Colon cancer
     Dosage: FOA-SOLUTION FOR INFUSION?FREQUENCY-ONCE
     Route: 042
     Dates: start: 20240524, end: 20240524

REACTIONS (1)
  - Pancreatitis acute [Recovered/Resolved]

NARRATIVE: CASE EVENT DATE: 20240527
